FAERS Safety Report 8060597-X (Version None)
Quarter: 2012Q1

REPORT INFORMATION
  Report Type: 
  Country: None (occurrence: None)
  Receive Date: 20120120
  Receipt Date: 20120117
  Transmission Date: 20120608
  Serious: Yes (Hospitalization)
  Sender: FDA-Public Use
  Company Number: DE-ABBOTT-12P-062-0890154-00

PATIENT
  Sex: Female
  Weight: 55 kg

DRUGS (6)
  1. PREDNISONE TAB [Concomitant]
     Dates: start: 20110801
  2. HUMIRA [Suspect]
     Route: 058
     Dates: start: 20120101
  3. PANTOPRAZOLE [Concomitant]
     Indication: PRODUCT USED FOR UNKNOWN INDICATION
  4. PREDNISONE TAB [Concomitant]
     Indication: PRODUCT USED FOR UNKNOWN INDICATION
  5. HUMIRA [Suspect]
     Indication: CROHN'S DISEASE
     Route: 058
     Dates: start: 20110209, end: 20110601
  6. PREDNISONE TAB [Concomitant]
     Dates: start: 20110523

REACTIONS (3)
  - INTESTINAL FISTULA [None]
  - INTESTINAL STENOSIS [None]
  - ABSCESS INTESTINAL [None]
